FAERS Safety Report 9798944 (Version 3)
Quarter: 2015Q3

REPORT INFORMATION
  Report Type: Spontaneous
  Country: US (occurrence: US)
  Receive Date: 20140106
  Receipt Date: 20150807
  Transmission Date: 20151125
  Serious: No
  Sender: FDA-Public Use
  Company Number: US-GILEAD-2010-0034515

PATIENT
  Age: 74 Year
  Sex: Male

DRUGS (1)
  1. LETAIRIS [Suspect]
     Active Substance: AMBRISENTAN
     Indication: PULMONARY ARTERIAL HYPERTENSION
     Route: 048
     Dates: start: 20090221

REACTIONS (10)
  - Anxiety [Unknown]
  - Nasal congestion [Unknown]
  - Oedema [Unknown]
  - Dyspnoea [Unknown]
  - Muscle spasms [Unknown]
  - Diarrhoea [Unknown]
  - Headache [Unknown]
  - Hypotension [Unknown]
  - Constipation [Unknown]
  - Palpitations [Unknown]
